FAERS Safety Report 7526166-2 (Version None)
Quarter: 2011Q2

REPORT INFORMATION
  Report Type: 
  Country: None (occurrence: None)
  Receive Date: 20110603
  Receipt Date: 20110603
  Transmission Date: 20111010
  Serious: Yes (Other)
  Sender: FDA-Public Use
  Company Number: None

PATIENT
  Sex: Female
  Weight: 41 kg

DRUGS (1)
  1. ERTAPENEM 1 GM MERCK [Suspect]
     Indication: ESCHERICHIA INFECTION
     Dosage: 1G Q24H IV BOLUS
     Route: 040
     Dates: start: 20110525, end: 20110602

REACTIONS (2)
  - CONVULSION [None]
  - RESPIRATORY DISTRESS [None]
